FAERS Safety Report 10411274 (Version 2)
Quarter: 2014Q3

REPORT INFORMATION
  Report Type: Spontaneous
  Country: US (occurrence: US)
  Receive Date: 20140826
  Receipt Date: 20140826
  Transmission Date: 20150326
  Serious: No
  Sender: FDA-Public Use
  Company Number: US-ASTRAZENECA-2013SE29786

PATIENT
  Age: 78 Year
  Sex: Male
  Weight: 56.7 kg

DRUGS (11)
  1. TIMOPTIC [Concomitant]
     Active Substance: TIMOLOL MALEATE
  2. SINGULAIR [Concomitant]
     Active Substance: MONTELUKAST SODIUM
  3. SYMBICORT [Suspect]
     Active Substance: BUDESONIDE\FORMOTEROL FUMARATE DIHYDRATE
     Indication: ASTHMA
     Dosage: 160/4.5 MCG  1 PUFF BID
     Route: 055
  4. DURAZOL [Concomitant]
  5. METOPROLOL [Suspect]
     Active Substance: METOPROLOL
     Route: 065
  6. EYE DROPS [Concomitant]
     Active Substance: TETRAHYDROZOLINE HYDROCHLORIDE
  7. RESTASIS [Concomitant]
     Active Substance: CYCLOSPORINE
  8. AMYLODIPINE [Concomitant]
  9. SYMBICORT [Suspect]
     Active Substance: BUDESONIDE\FORMOTEROL FUMARATE DIHYDRATE
     Indication: ASTHMA
     Dosage: 160/4.5 MCG  2 PUFFS BID
     Route: 055
     Dates: start: 201304
  10. ADVAIR HFA [Suspect]
     Active Substance: FLUTICASONE PROPIONATE\SALMETEROL XINAFOATE
     Route: 065
  11. LIPITOR [Concomitant]
     Active Substance: ATORVASTATIN CALCIUM

REACTIONS (3)
  - Off label use [Unknown]
  - Intentional product misuse [Unknown]
  - Dysphonia [Unknown]
